FAERS Safety Report 16235919 (Version 1)
Quarter: 2019Q2

REPORT INFORMATION
  Report Type: Spontaneous
  Country: GR (occurrence: GR)
  Receive Date: 20190425
  Receipt Date: 20190425
  Transmission Date: 20190711
  Serious: Yes (Disabling)
  Sender: FDA-Public Use
  Company Number: GR-TEVA-2019-GR-1042789

PATIENT
  Age: 36 Year
  Sex: Female
  Weight: 61 kg

DRUGS (3)
  1. TEVA OXALIPLATIN [Suspect]
     Active Substance: OXALIPLATIN
     Indication: COLON CANCER
     Route: 042
     Dates: start: 20130531, end: 20130531
  2. XELODA 500 MG FILM-COATED TABLET [Concomitant]
     Indication: COLON CANCER
     Route: 048
     Dates: start: 20130531, end: 20130613
  3. PRIMPERAN 10 MG TABLETS [Concomitant]
     Route: 048
     Dates: start: 20130531, end: 20130613

REACTIONS (6)
  - Somnolence [Recovered/Resolved]
  - Asthenia [Recovered/Resolved]
  - Dysphagia [Recovered/Resolved]
  - Water pollution [Recovered/Resolved]
  - Feeding disorder [Recovered/Resolved]
  - Oesophagitis [Recovered/Resolved]

NARRATIVE: CASE EVENT DATE: 20130531
